FAERS Safety Report 11003864 (Version 1)
Quarter: 2015Q2

REPORT INFORMATION
  Report Type: Spontaneous
  Country: FR (occurrence: FR)
  Receive Date: 20150409
  Receipt Date: 20150409
  Transmission Date: 20150821
  Serious: Yes (Other)
  Sender: FDA-Public Use
  Company Number: FR-JNJFOC-20150401707

PATIENT
  Age: 51 Year
  Sex: Female

DRUGS (2)
  1. ACTIFED [Suspect]
     Active Substance: PSEUDOEPHEDRINE HYDROCHLORIDE\TRIPROLIDINE HYDROCHLORIDE
     Indication: NASOPHARYNGITIS
     Route: 048
     Dates: start: 20150105, end: 20150107
  2. ACTIFED [Suspect]
     Active Substance: PSEUDOEPHEDRINE HYDROCHLORIDE\TRIPROLIDINE HYDROCHLORIDE
     Indication: NASOPHARYNGITIS
     Dosage: WHITE TABLET
     Route: 048
     Dates: start: 20150105, end: 20150107

REACTIONS (1)
  - Amnesia [Recovered/Resolved]

NARRATIVE: CASE EVENT DATE: 20150107
